FAERS Safety Report 7219197-3 (Version None)
Quarter: 2011Q1

REPORT INFORMATION
  Report Type: 
  Country: None (occurrence: None)
  Receive Date: 20110111
  Receipt Date: 20101229
  Transmission Date: 20110831
  Serious: Yes (Hospitalization)
  Sender: FDA-Public Use
  Company Number: PHHY2010DE20172

PATIENT
  Sex: Female
  Weight: 80 kg

DRUGS (6)
  1. ZOLEDRONATE [Suspect]
     Indication: BONE DISORDER
     Dosage: 4 MG EVERY 4 WEEK
     Route: 042
     Dates: start: 20100106, end: 20101126
  2. EPIRUBICIN [Concomitant]
     Dosage: 90 MG WEEKLY
     Dates: start: 20091201
  3. TAXOL [Concomitant]
     Dosage: 100 MG WEEKLY
     Dates: start: 20091201
  4. AVASTIN [Concomitant]
     Dosage: WEEKLY
  5. NAVELBINE [Concomitant]
     Dosage: UNK
     Dates: start: 20100927
  6. BEVACIZUMAB [Concomitant]
     Dosage: UNK
     Dates: start: 20091201

REACTIONS (8)
  - VOMITING [None]
  - NEOPLASM MALIGNANT [None]
  - GENERAL PHYSICAL HEALTH DETERIORATION [None]
  - ANAEMIA [None]
  - NAUSEA [None]
  - ALOPECIA [None]
  - BREAST NECROSIS [None]
  - LEUKOPENIA [None]
